FAERS Safety Report 5754674-3 (Version None)
Quarter: 2008Q2

REPORT INFORMATION
  Report Type: 
  Country: None (occurrence: None)
  Receive Date: 20080530
  Receipt Date: 20080519
  Transmission Date: 20081010
  Serious: Yes (Other)
  Sender: FDA-Public Use
  Company Number: US-PFIZER INC-2008043679

PATIENT
  Sex: Male
  Weight: 92.1 kg

DRUGS (9)
  1. CHANTIX [Suspect]
     Indication: SMOKING CESSATION THERAPY
     Dates: start: 20080501, end: 20080501
  2. PROTONIX [Concomitant]
  3. NORVASC [Concomitant]
  4. ZOLOFT [Concomitant]
  5. HYDROCHLOROTHIAZIDE [Concomitant]
  6. TRICOR [Concomitant]
  7. NITROGLYCERIN [Concomitant]
     Route: 060
  8. TOPROL-XL [Concomitant]
  9. ACETYLSALICYLIC ACID SRT [Concomitant]

REACTIONS (1)
  - CONFUSIONAL STATE [None]
